FAERS Safety Report 5343971-1 (Version None)
Quarter: 2007Q2

REPORT INFORMATION
  Report Type: 
  Country: None (occurrence: None)
  Receive Date: 20070531
  Receipt Date: 20070531
  Transmission Date: 20071010
  Serious: Yes (Life-Threatening, Hospitalization)
  Sender: FDA-Public Use
  Company Number: None

PATIENT
  Age: 82 Year
  Sex: Male

DRUGS (7)
  1. WARFARIN SODIUM [Suspect]
     Indication: ATRIAL FIBRILLATION
     Dosage: PO
     Route: 048
  2. WARFARIN SODIUM [Concomitant]
  3. LOVASTATIN [Concomitant]
  4. FUROSEMIDE [Concomitant]
  5. DIOVAN [Concomitant]
  6. NIFEDIPINE [Concomitant]
  7. PROPRANOLOL [Concomitant]

REACTIONS (3)
  - BASAL GANGLIA HAEMORRHAGE [None]
  - COAGULOPATHY [None]
  - INTERNATIONAL NORMALISED RATIO INCREASED [None]
